FAERS Safety Report 25918144 (Version 1)
Quarter: 2025Q4

REPORT INFORMATION
  Report Type: Spontaneous
  Country: CN (occurrence: CN)
  Receive Date: 20251014
  Receipt Date: 20251014
  Transmission Date: 20260118
  Serious: Yes (Other)
  Sender: BAXTER
  Company Number: None

PATIENT
  Age: 69 Year
  Sex: Female
  Weight: 52 kg

DRUGS (5)
  1. CYCLOPHOSPHAMIDE [Suspect]
     Active Substance: CYCLOPHOSPHAMIDE
     Indication: Diffuse large B-cell lymphoma
     Dosage: 1.1 G, QD, D2
     Route: 041
     Dates: start: 20250906, end: 20250906
  2. DOXORUBICIN HYDROCHLORIDE [Suspect]
     Active Substance: DOXORUBICIN HYDROCHLORIDE
     Indication: Diffuse large B-cell lymphoma
     Dosage: 40 MG, QD, D2
     Route: 041
     Dates: start: 20250906, end: 20250906
  3. MABTHERA [Suspect]
     Active Substance: RITUXIMAB
     Indication: Diffuse large B-cell lymphoma
     Dosage: 570 MG, QD, D1
     Route: 041
     Dates: start: 20250905, end: 20250905
  4. DEXAMETHASONE SODIUM PHOSPHATE [Suspect]
     Active Substance: DEXAMETHASONE SODIUM PHOSPHATE
     Indication: Diffuse large B-cell lymphoma
     Dosage: 15 MG, QD, D1-D5
     Route: 041
     Dates: start: 20250905, end: 20250909
  5. POLIVY [Suspect]
     Active Substance: POLATUZUMAB VEDOTIN-PIIQ
     Indication: Diffuse large B-cell lymphoma
     Dosage: 100 MG, QD, D1
     Route: 041
     Dates: start: 20250905, end: 20250905

REACTIONS (3)
  - Arrhythmia [Recovering/Resolving]
  - Toxicity to various agents [Unknown]
  - Palpitations [Recovering/Resolving]

NARRATIVE: CASE EVENT DATE: 20250910
